FAERS Safety Report 4511828-1 (Version None)
Quarter: 2004Q4

REPORT INFORMATION
  Report Type: 
  Country: None (occurrence: None)
  Receive Date: 20041129
  Receipt Date: 20041111
  Transmission Date: 20050328
  Serious: Yes (Hospitalization)
  Sender: FDA-Public Use
  Company Number: US-MERCK-0411USA02118

PATIENT
  Age: 84 Year
  Sex: Female
  Weight: 59 kg

DRUGS (7)
  1. LEVOTHYROXINE SODIUM [Concomitant]
     Indication: HYPOTHYROIDISM
     Route: 048
  2. ATENOLOL [Concomitant]
     Indication: HYPERTENSION
     Route: 048
  3. ZYRTEC [Concomitant]
     Indication: PRURITUS
     Route: 048
  4. ASPIRIN [Concomitant]
     Route: 065
  5. ZETIA [Suspect]
     Indication: HYPERLIPIDAEMIA
     Route: 048
     Dates: start: 20040621, end: 20041025
  6. ZOCOR [Concomitant]
     Route: 065
  7. COZAAR [Concomitant]
     Indication: HYPERTENSION
     Route: 048

REACTIONS (4)
  - CARDIAC FAILURE CONGESTIVE [None]
  - HEPATITIS ACUTE [None]
  - PLEURAL EFFUSION [None]
  - RASH SCALY [None]
